FAERS Safety Report 7708705-1 (Version None)
Quarter: 2011Q3

REPORT INFORMATION
  Report Type: 
  Country: None (occurrence: None)
  Receive Date: 20110825
  Receipt Date: 20110819
  Transmission Date: 20111222
  Serious: Yes (Other)
  Sender: FDA-Public Use
  Company Number: BR-ABBOTT-11P-020-0848184-00

PATIENT
  Sex: Female
  Weight: 76 kg

DRUGS (4)
  1. VERTIX [Concomitant]
     Indication: LABYRINTHITIS
     Route: 048
  2. SYNTHROID [Suspect]
     Indication: HYPOTHYROIDISM
     Route: 048
  3. LEPRAZOL [Suspect]
     Indication: BREAST CANCER
     Route: 048
  4. NAPRIX D [Concomitant]
     Indication: BLOOD PRESSURE
     Route: 048

REACTIONS (7)
  - DRUG DOSE OMISSION [None]
  - HYPOTENSION [None]
  - MIGRAINE [None]
  - OSTEOPOROSIS [None]
  - BREAST CANCER STAGE I [None]
  - HYPERTENSION [None]
  - ANAL HAEMORRHAGE [None]
